FAERS Safety Report 25546497 (Version 1)
Quarter: 2025Q3

REPORT INFORMATION
  Report Type: Report from Study
  Country: US (occurrence: US)
  Receive Date: 20250713
  Receipt Date: 20250713
  Transmission Date: 20251021
  Serious: Yes (Other)
  Sender: ABBVIE
  Company Number: US-ABBVIE-6364431

PATIENT
  Age: 43 Year
  Sex: Female

DRUGS (1)
  1. HUMIRA [Suspect]
     Active Substance: ADALIMUMAB
     Indication: Crohn^s disease
     Dosage: DOSAGE: 40 MG/ML CITRATE FREE
     Route: 058
     Dates: start: 20070101, end: 202504

REACTIONS (5)
  - Intestinal obstruction [Not Recovered/Not Resolved]
  - Abnormal faeces [Unknown]
  - Pyrexia [Unknown]
  - Arthralgia [Unknown]
  - Vomiting [Unknown]

NARRATIVE: CASE EVENT DATE: 20250705
